FAERS Safety Report 6762450-8 (Version None)
Quarter: 2010Q2

REPORT INFORMATION
  Report Type: 
  Country: None (occurrence: None)
  Receive Date: 20100609
  Receipt Date: 20100528
  Transmission Date: 20101027
  Serious: Yes (Other)
  Sender: FDA-Public Use
  Company Number: CH-ELI_LILLY_AND_COMPANY-CH201006000687

PATIENT
  Age: 43 Year
  Sex: Female

DRUGS (5)
  1. FLUCTINE [Suspect]
     Indication: DEPRESSION
     Dosage: 20 MG, DAILY (1/D)
  2. ANXIOLIT [Concomitant]
     Indication: DEPRESSION
     Dosage: 15 MG, 3/D
  3. FLECTOR /00372307/ [Concomitant]
     Dosage: 50 MG, 4/D
     Dates: start: 20090409, end: 20090413
  4. ZYRTEC [Concomitant]
     Indication: RHINITIS ALLERGIC
     Dosage: 10 MG, DAILY (1/D)
  5. ANTABUSE [Concomitant]
     Indication: ALCOHOL USE
     Dosage: 400 MG, 2/W

REACTIONS (3)
  - ABORTION SPONTANEOUS [None]
  - ALCOHOLISM [None]
  - DRUG EXPOSURE DURING PREGNANCY [None]
